FAERS Safety Report 4588216-5 (Version None)
Quarter: 2005Q1

REPORT INFORMATION
  Report Type: 
  Country: None (occurrence: None)
  Receive Date: 20050221
  Receipt Date: 20041216
  Transmission Date: 20050727
  Serious: Yes (Death, Life-Threatening, Hospitalization)
  Sender: FDA-Public Use
  Company Number: US-ROCHE-391193

PATIENT
  Age: 71 Year
  Sex: Female
  Weight: 117.5 kg

DRUGS (2)
  1. CAPECITABINE [Suspect]
     Indication: RECTAL CANCER
     Route: 048
     Dates: start: 20041117, end: 20041207
  2. IRINOTECAN HCL [Suspect]
     Indication: RECTAL CANCER
     Dosage: GIVEN ON 17 NOVEMBER 2004, 24 NOVEMBER 2004 AND 1 DECEMBER 2004.
     Route: 042
     Dates: start: 20041117

REACTIONS (25)
  - ANAEMIA [None]
  - ATRIAL FIBRILLATION [None]
  - BLOOD BILIRUBIN INCREASED [None]
  - DEHYDRATION [None]
  - DIARRHOEA [None]
  - EJECTION FRACTION DECREASED [None]
  - ENTERITIS [None]
  - HYPOTENSION [None]
  - HYPOXIA [None]
  - INTERNATIONAL NORMALISED RATIO ABNORMAL [None]
  - LEFT VENTRICULAR FAILURE [None]
  - LEUKOPENIA [None]
  - LUNG INFECTION [None]
  - METABOLIC ACIDOSIS [None]
  - MULTI-ORGAN FAILURE [None]
  - NAUSEA [None]
  - NEUTROPENIA [None]
  - PERICARDIAL EFFUSION [None]
  - PLEURAL EFFUSION [None]
  - RECTAL HAEMORRHAGE [None]
  - RENAL FAILURE ACUTE [None]
  - SEPSIS SYNDROME [None]
  - STOMATITIS [None]
  - THROMBOCYTOPENIA [None]
  - VOMITING [None]
